FAERS Safety Report 14749588 (Version 2)
Quarter: 2018Q2

REPORT INFORMATION
  Report Type: Report from Study
  Country: US (occurrence: US)
  Receive Date: 20180411
  Receipt Date: 20180413
  Transmission Date: 20180711
  Serious: Yes (Other)
  Sender: FDA-Public Use
  Company Number: US-SHIRE-US201812612

PATIENT
  Age: 64 Year
  Sex: Female

DRUGS (1)
  1. CUVITRU [Suspect]
     Active Substance: HUMAN IMMUNOGLOBULIN G
     Indication: PRODUCT USED FOR UNKNOWN INDICATION
     Route: 065

REACTIONS (7)
  - Gait inability [Unknown]
  - Limb injury [Unknown]
  - Intervertebral disc protrusion [Unknown]
  - Joint swelling [Unknown]
  - Ankle fracture [Unknown]
  - Accident [Unknown]
  - Impaired healing [Unknown]

NARRATIVE: CASE EVENT DATE: 201710
